FAERS Safety Report 8085157-6 (Version None)
Quarter: 2012Q1

REPORT INFORMATION
  Report Type: 
  Country: None (occurrence: None)
  Receive Date: 20120128
  Receipt Date: 20110314
  Transmission Date: 20120608
  Serious: No
  Sender: FDA-Public Use
  Company Number: US-ABBOTT-11P-163-0711574-00

PATIENT
  Sex: Female
  Weight: 80.812 kg

DRUGS (4)
  1. LISINOPRIL [Concomitant]
     Indication: HYPERTENSION
  2. BIOFLEX [Concomitant]
     Indication: SUPPLEMENTATION THERAPY
  3. HUMIRA [Suspect]
     Indication: RHEUMATOID ARTHRITIS
     Dates: start: 20110101
  4. OXYCODONE HCL [Concomitant]
     Indication: PAIN
     Dosage: BID

REACTIONS (3)
  - DRUG INEFFECTIVE [None]
  - INCORRECT STORAGE OF DRUG [None]
  - VITAMIN D DECREASED [None]
